FAERS Safety Report 6564449-3 (Version None)
Quarter: 2010Q1

REPORT INFORMATION
  Report Type: 
  Country: None (occurrence: None)
  Receive Date: 20100201
  Receipt Date: 20100129
  Transmission Date: 20100710
  Serious: Yes (Death, Other)
  Sender: FDA-Public Use
  Company Number: US-ASTRAZENECA-2008UW08596

PATIENT
  Age: 13698 Day
  Sex: Male
  Weight: 136.1 kg

DRUGS (13)
  1. SEROQUEL [Suspect]
     Indication: ANXIETY
     Route: 048
     Dates: start: 20041101, end: 20080301
  2. SEROQUEL [Suspect]
     Indication: DEPRESSION
     Route: 048
     Dates: start: 20041101, end: 20080301
  3. SEROQUEL [Suspect]
     Indication: SCHIZOPHRENIA
     Route: 048
     Dates: start: 20041101, end: 20080301
  4. SEROQUEL [Suspect]
     Indication: INSOMNIA
     Route: 048
     Dates: start: 20041101, end: 20080301
  5. SEROQUEL [Suspect]
     Dosage: 300-600 MG
     Route: 048
     Dates: start: 20070628, end: 20080712
  6. SEROQUEL [Suspect]
     Dosage: 300-600 MG
     Route: 048
     Dates: start: 20070628, end: 20080712
  7. SEROQUEL [Suspect]
     Dosage: 300-600 MG
     Route: 048
     Dates: start: 20070628, end: 20080712
  8. SEROQUEL [Suspect]
     Dosage: 300-600 MG
     Route: 048
     Dates: start: 20070628, end: 20080712
  9. ABILIFY [Concomitant]
  10. CYMBALTA [Concomitant]
     Dates: start: 20070101
  11. CLONAZEPAM [Concomitant]
     Dates: start: 20070101
  12. INVEGA [Concomitant]
     Dates: start: 20070101
  13. LYRICA [Concomitant]
     Dates: start: 20070101

REACTIONS (4)
  - DEATH [None]
  - DIABETES MELLITUS [None]
  - KETOACIDOSIS [None]
  - PANCREATITIS [None]
